FAERS Safety Report 7714864-7 (Version None)
Quarter: 2011Q3

REPORT INFORMATION
  Report Type: 
  Country: None (occurrence: None)
  Receive Date: 20110810
  Receipt Date: 20110607
  Transmission Date: 20111222
  Serious: No
  Sender: FDA-Public Use
  Company Number: 1000021477

PATIENT
  Age: 45 Year
  Sex: Male

DRUGS (9)
  1. ALLEGRA (FEXOFENADINE) (FEXOFENADINE) [Concomitant]
  2. SUDAFED (PHENYLEPHRINE) (PHENYLEPHRINE) [Concomitant]
  3. VENTOLIN (ALBUTEROL) (ALBUTEROL) [Concomitant]
  4. SAVELLA [Suspect]
     Indication: FIBROMYALGIA
     Dosage: SEE IMAGE
     Route: 048
     Dates: start: 20110531, end: 20110531
  5. SAVELLA [Suspect]
     Indication: FIBROMYALGIA
     Dosage: SEE IMAGE
     Route: 048
     Dates: start: 20110601, end: 20110602
  6. SAVELLA [Suspect]
     Indication: FIBROMYALGIA
     Dosage: SEE IMAGE
     Route: 048
     Dates: start: 20110603, end: 20110606
  7. SAVELLA [Suspect]
     Indication: FIBROMYALGIA
     Dosage: SEE IMAGE
     Route: 048
     Dates: start: 20110607
  8. CELEBREX [Concomitant]
  9. AMBIEN [Concomitant]

REACTIONS (2)
  - CHEST PAIN [None]
  - HEART RATE INCREASED [None]
